FAERS Safety Report 17517024 (Version 2)
Quarter: 2020Q1

REPORT INFORMATION
  Report Type: Spontaneous
  Country: IT (occurrence: IT)
  Receive Date: 20200309
  Receipt Date: 20200311
  Transmission Date: 20200409
  Serious: Yes (Other)
  Sender: FDA-Public Use
  Company Number: IT-PFIZER INC-2020096272

PATIENT
  Age: 85 Day
  Sex: Male
  Weight: 2.25 kg

DRUGS (1)
  1. FLUCONAZOLE. [Suspect]
     Active Substance: FLUCONAZOLE
     Indication: CANDIDA INFECTION
     Dosage: 6 MG/KG, DAILY

REACTIONS (2)
  - Drug ineffective [Recovered/Resolved]
  - Liver abscess [Recovered/Resolved]
